FAERS Safety Report 14556265 (Version 1)
Quarter: 2018Q1

REPORT INFORMATION
  Report Type: Spontaneous
  Country: US (occurrence: US)
  Receive Date: 20180221
  Receipt Date: 20180221
  Transmission Date: 20180509
  Serious: No
  Sender: FDA-Public Use
  Company Number: US-AUROBINDO-AUR-APL-2017-34749

PATIENT
  Age: 52 Year
  Sex: Female

DRUGS (1)
  1. CEFDINIR CAPSULES 300 MG [Suspect]
     Active Substance: CEFDINIR
     Indication: EAR INFECTION
     Dosage: 300 MG, TWO TIMES A DAY
     Route: 048
     Dates: start: 20170509, end: 20170519

REACTIONS (3)
  - Dyspepsia [Recovered/Resolved]
  - Pruritus [Not Recovered/Not Resolved]
  - Rash [Recovered/Resolved]

NARRATIVE: CASE EVENT DATE: 20170510
